FAERS Safety Report 14337346 (Version 1)
Quarter: 2017Q4

REPORT INFORMATION
  Report Type: Report from Study
  Country: IT (occurrence: IT)
  Receive Date: 20171229
  Receipt Date: 20171229
  Transmission Date: 20180321
  Serious: Yes (Hospitalization)
  Sender: FDA-Public Use
  Company Number: IT-PFIZER INC-2017552643

PATIENT
  Sex: Female

DRUGS (7)
  1. 5-FU /00098801/ [Suspect]
     Active Substance: FLUOROURACIL
     Dosage: 3880 MG, CYCLIC
     Route: 041
     Dates: start: 20150205
  2. LEUCOVORIN /00566701/ [Suspect]
     Active Substance: LEUCOVORIN
     Indication: COLORECTAL CANCER METASTATIC
     Dosage: 320 MG, CYCLIC
     Route: 041
     Dates: start: 20150205, end: 20150205
  3. LEVOTHYROXINE SODIUM. [Concomitant]
     Active Substance: LEVOTHYROXINE SODIUM
     Dosage: UNK
     Route: 065
     Dates: start: 200510
  4. AFLIBERCEPT [Suspect]
     Active Substance: AFLIBERCEPT
     Indication: COLORECTAL CANCER METASTATIC
     Dosage: 240 MG, CYCLIC
     Route: 041
     Dates: start: 20151202, end: 20151202
  5. AFLIBERCEPT [Suspect]
     Active Substance: AFLIBERCEPT
     Dosage: 240 MG, CYCLIC
     Route: 041
     Dates: start: 20150205, end: 20150205
  6. 5-FU /00098801/ [Suspect]
     Active Substance: FLUOROURACIL
     Indication: COLORECTAL CANCER METASTATIC
     Dosage: 645 MG, CYCLIC
     Route: 040
     Dates: start: 20150205, end: 20150205
  7. IRINOTECAN HCL [Suspect]
     Active Substance: IRINOTECAN HYDROCHLORIDE
     Indication: COLON CANCER METASTATIC
     Dosage: 220 MG, CYCLIC
     Route: 041
     Dates: start: 20150205, end: 20150205

REACTIONS (1)
  - Proteinuria [Recovered/Resolved]

NARRATIVE: CASE EVENT DATE: 20151217
